FAERS Safety Report 7966167-3 (Version None)
Quarter: 2011Q4

REPORT INFORMATION
  Report Type: 
  Country: None (occurrence: None)
  Receive Date: 20111208
  Receipt Date: 20111207
  Transmission Date: 20120403
  Serious: Yes (Death)
  Sender: FDA-Public Use
  Company Number: JP-B.I. PHARMACEUTICALS,INC./RIDGEFIELD-2011-BP-27313NB

PATIENT
  Age: 70 Year
  Sex: Female
  Weight: 51.2 kg

DRUGS (6)
  1. VERAPAMIL HCL [Concomitant]
     Route: 065
  2. DIGOXIN [Concomitant]
     Route: 065
  3. PRADAXA [Suspect]
     Indication: ATRIAL FIBRILLATION
     Dosage: 220 MG
     Route: 048
     Dates: start: 20111119, end: 20111124
  4. BISOPROLOL FUMARATE [Suspect]
     Route: 065
     Dates: start: 20111008, end: 20111019
  5. DIART [Concomitant]
     Route: 065
  6. ALDACTONE [Concomitant]
     Route: 065

REACTIONS (2)
  - HEPATIC FAILURE [None]
  - SHOCK [None]
